FAERS Safety Report 8407064-9 (Version None)
Quarter: 2012Q2

REPORT INFORMATION
  Report Type: 
  Country: None (occurrence: None)
  Receive Date: 20120604
  Receipt Date: 20120601
  Transmission Date: 20120825
  Serious: Yes (Other)
  Sender: FDA-Public Use
  Company Number: PHEH2012US011171

PATIENT
  Sex: Female

DRUGS (3)
  1. EXFORGE HCT [Suspect]
     Dosage: 1 DF, (10/320 MG)
  2. MULTI-VITAMIN [Concomitant]
     Dosage: UNK UKN, UNK
  3. KLOR-CON [Concomitant]
     Dosage: 20 MG, UNK

REACTIONS (5)
  - NAUSEA [None]
  - LOSS OF CONSCIOUSNESS [None]
  - OEDEMA PERIPHERAL [None]
  - SWELLING [None]
  - ARTHROPOD STING [None]
